FAERS Safety Report 13454796 (Version 1)
Quarter: 2017Q2

REPORT INFORMATION
  Report Type: Spontaneous
  Country: JP (occurrence: JP)
  Receive Date: 20170418
  Receipt Date: 20170418
  Transmission Date: 20170830
  Serious: Yes (Hospitalization)
  Sender: FDA-Public Use
  Company Number: JP-LANNETT COMPANY, INC.-JP-2017LAN000697

PATIENT
  Age: 81 Year
  Sex: Female

DRUGS (2)
  1. DANAZOL CAPSULES USP, 200 MG [Suspect]
     Active Substance: DANAZOL
     Dosage: 200 MG, QD
     Dates: start: 201407
  2. DANAZOL CAPSULES USP, 200 MG [Suspect]
     Active Substance: DANAZOL
     Indication: APLASTIC ANAEMIA
     Dosage: 100 MG, QD
     Dates: start: 2012, end: 201407

REACTIONS (3)
  - Pancytopenia [Recovered/Resolved]
  - Peliosis hepatis [Recovered/Resolved]
  - Disseminated intravascular coagulation [Recovered/Resolved]
